FAERS Safety Report 5312610-8 (Version None)
Quarter: 2007Q2

REPORT INFORMATION
  Report Type: 
  Country: None (occurrence: None)
  Receive Date: 20070430
  Receipt Date: 20061128
  Transmission Date: 20071010
  Serious: No
  Sender: FDA-Public Use
  Company Number: 2006UW26644

PATIENT
  Age: 74 Year
  Sex: Female
  Weight: 102.1 kg

DRUGS (3)
  1. NEXIUM [Suspect]
     Indication: DYSPEPSIA
     Route: 048
  2. NORVASC [Concomitant]
  3. TOPROL-XL [Concomitant]

REACTIONS (1)
  - CHROMATURIA [None]
